FAERS Safety Report 19773782 (Version 1)
Quarter: 2021Q3

REPORT INFORMATION
  Report Type: Other
  Country: IR (occurrence: IR)
  Receive Date: 20210901
  Receipt Date: 20210901
  Transmission Date: 20211014
  Serious: Yes (Hospitalization)
  Sender: FDA-Public Use
  Company Number: IR-ROCHE-2901846

PATIENT
  Age: 79 Year
  Sex: Male

DRUGS (3)
  1. ACTILYSE [Suspect]
     Active Substance: ALTEPLASE
     Indication: PULMONARY EMBOLISM
     Dosage: 24 MG OF TISSUE PLASMINOGEN ACTIVATOR (TPA)  WAS INFUSED DURING A 24?HOUR PERIOD. TAKEN 1/ONCE
     Route: 065
  2. ASPIRIN [ACETYLSALICYLIC ACID] [Concomitant]
     Active Substance: ASPIRIN
     Indication: VENTRICULAR EXTRASYSTOLES
  3. SOTALOL. [Concomitant]
     Active Substance: SOTALOL
     Indication: VENTRICULAR EXTRASYSTOLES

REACTIONS (2)
  - Oesophageal intramural haematoma [Recovered/Resolved]
  - Thrombolysis [Recovered/Resolved]
